FAERS Safety Report 9759636 (Version 1)
Quarter: 2013Q4

REPORT INFORMATION
  Report Type: Spontaneous
  Country: US (occurrence: US)
  Receive Date: 20131216
  Receipt Date: 20131216
  Transmission Date: 20140711
  Serious: No
  Sender: FDA-Public Use
  Company Number: US-GILEAD-2010-0028490

PATIENT
  Sex: Male
  Weight: 120.2 kg

DRUGS (11)
  1. LETAIRIS [Suspect]
     Indication: PULMONARY ARTERIAL HYPERTENSION
     Route: 048
     Dates: start: 20100204
  2. NAPROXEN [Concomitant]
  3. CENTRUM [Concomitant]
  4. REQUIP [Concomitant]
  5. LASIX [Concomitant]
  6. VICODIN [Concomitant]
  7. DIOVAN [Concomitant]
  8. ADVAIR [Concomitant]
  9. KLOR-CON [Concomitant]
  10. SPIRIVA [Concomitant]
  11. ASPIRIN [Concomitant]

REACTIONS (3)
  - Rash [Unknown]
  - Dyspnoea [Unknown]
  - Local swelling [Unknown]
